FAERS Safety Report 22115845 (Version 1)
Quarter: 2023Q1

REPORT INFORMATION
  Report Type: Report from Study
  Country: GR (occurrence: GR)
  Receive Date: 20230320
  Receipt Date: 20230320
  Transmission Date: 20230418
  Serious: Yes (Hospitalization)
  Sender: FDA-Public Use
  Company Number: GR-ELI_LILLY_AND_COMPANY-GR202302011989

PATIENT
  Age: 65 Year
  Sex: Female

DRUGS (1)
  1. INSULIN GLARGINE [Suspect]
     Active Substance: INSULIN GLARGINE
     Indication: Diabetes mellitus
     Dosage: 17 INTERNATIONAL UNIT, DAILY 11-17 IU
     Route: 065
     Dates: start: 20230221

REACTIONS (2)
  - Dysuria [Unknown]
  - Vomiting [Unknown]

NARRATIVE: CASE EVENT DATE: 20230222
